FAERS Safety Report 6487292-2 (Version None)
Quarter: 2009Q4

REPORT INFORMATION
  Report Type: 
  Country: None (occurrence: None)
  Receive Date: 20091123
  Receipt Date: 20090723
  Transmission Date: 20100525
  Serious: No
  Sender: FDA-Public Use
  Company Number: 8049370

PATIENT
  Age: 35 Year
  Sex: Male

DRUGS (1)
  1. CIMZIA [Suspect]
     Indication: CROHN'S DISEASE
     Dosage: 400 MG /M SC
     Route: 058
     Dates: start: 20090622, end: 20090722

REACTIONS (5)
  - ARTHRALGIA [None]
  - CHILLS [None]
  - MYALGIA [None]
  - NAUSEA [None]
  - PYREXIA [None]
